FAERS Safety Report 8395940-5 (Version None)
Quarter: 2012Q2

REPORT INFORMATION
  Report Type: 
  Country: None (occurrence: None)
  Receive Date: 20120530
  Receipt Date: 20120524
  Transmission Date: 20120825
  Serious: Yes (Other)
  Sender: FDA-Public Use
  Company Number: PHHY2012ZA045603

PATIENT
  Sex: Male

DRUGS (4)
  1. CONCERTA [Concomitant]
     Dosage: UNK UKN, UNK
  2. RITALIN [Suspect]
     Indication: ATTENTION DEFICIT/HYPERACTIVITY DISORDER
     Dosage: 10 MG, UNK
  3. RITALIN LA [Suspect]
     Dosage: 30 MG, UNK
  4. RITALIN LA [Suspect]
     Indication: ATTENTION DEFICIT/HYPERACTIVITY DISORDER
     Dosage: 20 MG, UNK

REACTIONS (5)
  - HEPATIC ENZYME ABNORMAL [None]
  - JAUNDICE [None]
  - DRUG INEFFECTIVE [None]
  - FATIGUE [None]
  - SOMNOLENCE [None]
